FAERS Safety Report 20931134 (Version 6)
Quarter: 2025Q2

REPORT INFORMATION
  Report Type: Spontaneous
  Country: US (occurrence: US)
  Receive Date: 20220608
  Receipt Date: 20250408
  Transmission Date: 20250716
  Serious: Yes (Other)
  Sender: PFIZER
  Company Number: US-PFIZER INC-202200804816

PATIENT
  Age: 54 Year
  Sex: Female

DRUGS (1)
  1. XELJANZ XR [Suspect]
     Active Substance: TOFACITINIB CITRATE

REACTIONS (6)
  - Rheumatoid arthritis [Recovering/Resolving]
  - Knee arthroplasty [Unknown]
  - Fatigue [Recovering/Resolving]
  - Memory impairment [Unknown]
  - Sneezing [Unknown]
  - Illness [Unknown]
